FAERS Safety Report 11622704 (Version 1)
Quarter: 2015Q4

REPORT INFORMATION
  Report Type: Spontaneous
  Country: US (occurrence: None)
  Receive Date: 20151009
  Receipt Date: 20151009
  Transmission Date: 20160304
  Serious: Yes (Hospitalization)
  Sender: FDA-Public Use
  Company Number: None

PATIENT
  Age: 50 Year
  Sex: Female

DRUGS (4)
  1. DICLOFENAC [Suspect]
     Active Substance: DICLOFENAC
     Indication: ARTHRITIS
     Dosage: YEARS
     Dates: start: 1985, end: 20140222
  2. FENOFIBRATE. [Suspect]
     Active Substance: FENOFIBRATE
     Dates: start: 20131018, end: 20140523
  3. REMODULIN [Concomitant]
     Active Substance: TREPROSTINIL
  4. TADALAIL [Concomitant]

REACTIONS (6)
  - Jaundice [None]
  - Blood potassium decreased [None]
  - International normalised ratio increased [None]
  - Cardiac failure [None]
  - Intestinal ischaemia [None]
  - Acute hepatic failure [None]

NARRATIVE: CASE EVENT DATE: 20140519
